FAERS Safety Report 18240436 (Version 1)
Quarter: 2020Q3

REPORT INFORMATION
  Report Type: Spontaneous
  Country: FR (occurrence: FR)
  Receive Date: 20200908
  Receipt Date: 20200908
  Transmission Date: 20201103
  Serious: Yes (Hospitalization, Other)
  Sender: FDA-Public Use
  Company Number: FR-TEVA-2020-FR-1820625

PATIENT
  Age: 85 Year
  Sex: Male
  Weight: 66 kg

DRUGS (6)
  1. AZILECT [Suspect]
     Active Substance: RASAGILINE MESYLATE
     Indication: PARKINSON^S DISEASE
     Dosage: 1 MILLIGRAM DAILY; IN THE MORNING
     Route: 065
     Dates: end: 20200819
  2. LERCAN 20 MG [Concomitant]
     Indication: HYPERTENSION
     Dosage: 1 DOSAGE FORMS DAILY; IN THE MORNING
     Route: 048
  3. COAPROVEL 300/25 [Concomitant]
     Indication: HYPERTENSION
     Dosage: 1 DOSAGE FORMS DAILY; IN THE MORNING
     Route: 048
  4. SEREVENT 25 MCG [Concomitant]
     Indication: ASTHMA
     Dosage: TWO DOSAGE FORMS IN THE MORNING AND IN THE EVENING
     Route: 055
  5. CRESTOR [Concomitant]
     Active Substance: ROSUVASTATIN CALCIUM
     Indication: HYPERCHOLESTEROLAEMIA
     Dosage: 1 DOSAGE FORMS DAILY; IN THE EVENING
     Route: 048
  6. MODOPAR 250 MG [Concomitant]
     Indication: PARKINSON^S DISEASE
     Dosage: 3 DOSAGE FORMS DAILY; ONE DOSAGE FORM IN THE MORNING, AT DINNER AND IN THE EVENING
     Route: 048

REACTIONS (8)
  - Hypotension [Unknown]
  - Orthostatic hypotension [Unknown]
  - Confusional state [Recovered/Resolved]
  - Persecutory delusion [Recovered/Resolved]
  - Dehydration [Unknown]
  - Agitation [Not Recovered/Not Resolved]
  - Neoplasm prostate [Unknown]
  - Hallucination, visual [Recovered/Resolved]

NARRATIVE: CASE EVENT DATE: 20200817
